FAERS Safety Report 8495869-8 (Version None)
Quarter: 2012Q3

REPORT INFORMATION
  Report Type: 
  Country: None (occurrence: None)
  Receive Date: 20120709
  Receipt Date: 20120703
  Transmission Date: 20120928
  Serious: Yes (Life-Threatening, Hospitalization)
  Sender: FDA-Public Use
  Company Number: JP-PFIZER INC-2012133035

PATIENT
  Age: 40 Year
  Sex: Male
  Weight: 73.2 kg

DRUGS (10)
  1. VARENICLINE TARTRATE [Suspect]
     Indication: NICOTINE DEPENDENCE
     Dosage: 0.5 MG, 1X/DAY
     Route: 048
     Dates: start: 20120416, end: 20120418
  2. LANSOPRAZOLE [Suspect]
     Dosage: 15 MG, 1X/DAY
     Route: 048
     Dates: start: 20120511, end: 20120524
  3. IRRIBOW [Suspect]
     Indication: IRRITABLE BOWEL SYNDROME
     Dosage: 5 UG, 1X/DAY
     Route: 048
     Dates: start: 20120512, end: 20120518
  4. TSUKUSHI AM [Concomitant]
     Indication: GASTRITIS
     Dosage: 1.3 G, 3X/DAY
     Route: 048
     Dates: start: 20120528
  5. VARENICLINE TARTRATE [Suspect]
     Dosage: 0.5 MG, 2X/DAY
     Route: 048
     Dates: start: 20120419, end: 20120422
  6. VARENICLINE TARTRATE [Suspect]
     Dosage: 1 MG, 2X/DAY
     Route: 048
     Dates: start: 20120423, end: 20120531
  7. FAMOTIDINE [Concomitant]
     Indication: OESOPHAGITIS
     Dosage: 20 MG, 2X/DAY
     Route: 048
     Dates: start: 20120528
  8. FAMOTIDINE [Concomitant]
     Indication: GASTRITIS
  9. LANSOPRAZOLE [Suspect]
     Indication: OESOPHAGITIS
     Dosage: 15 MG, 1X/DAY
     Route: 048
     Dates: start: 20120416, end: 20120422
  10. GASTROM [Concomitant]
     Indication: GASTRITIS
     Dosage: 1.0 G, 3X/DAY
     Route: 048
     Dates: start: 20120528

REACTIONS (4)
  - LIVER DISORDER [None]
  - IRRITABLE BOWEL SYNDROME [None]
  - OESOPHAGITIS [None]
  - GASTRITIS [None]
